FAERS Safety Report 8583685-8 (Version None)
Quarter: 2012Q3

REPORT INFORMATION
  Report Type: 
  Country: None (occurrence: None)
  Receive Date: 20120809
  Receipt Date: 20120711
  Transmission Date: 20120928
  Serious: Yes (Hospitalization)
  Sender: FDA-Public Use
  Company Number: US-009507513-1206USA01221

PATIENT

DRUGS (9)
  1. VANCOMYCIN [Concomitant]
     Indication: OSTEOMYELITIS
  2. INSULIN [Concomitant]
  3. AZTREONAM [Concomitant]
     Indication: OSTEOMYELITIS
  4. MK-0805 [Concomitant]
     Indication: RENAL FAILURE
  5. SPIRONOLACTONE [Concomitant]
     Indication: RENAL FAILURE
  6. CELECOXIB [Concomitant]
  7. MK-9355 [Concomitant]
  8. PRINIVIL [Suspect]
     Route: 048
  9. WARFARIN SODIUM [Concomitant]

REACTIONS (1)
  - HYPOTENSIVE TRANSFUSION REACTION [None]
